FAERS Safety Report 6461924-7 (Version None)
Quarter: 2009Q4

REPORT INFORMATION
  Report Type: 
  Country: None (occurrence: None)
  Receive Date: 20091130
  Receipt Date: 20091118
  Transmission Date: 20100525
  Serious: Yes (Hospitalization)
  Sender: FDA-Public Use
  Company Number: US-ASTRAZENECA-2009SE27258

PATIENT
  Age: 89 Year
  Sex: Female
  Weight: 54.4 kg

DRUGS (10)
  1. SEROQUEL [Suspect]
     Route: 048
     Dates: start: 20091003
  2. SEROQUEL [Suspect]
     Route: 048
  3. MIRTAZAPINE [Concomitant]
  4. COZAAR [Concomitant]
  5. AGGRENOX [Concomitant]
  6. PEPCID [Concomitant]
  7. COREG [Concomitant]
  8. MAXZIDE [Concomitant]
  9. ATIVAN [Concomitant]
  10. MULTI-VITAMIN [Concomitant]

REACTIONS (4)
  - AGITATION [None]
  - HYPOAESTHESIA [None]
  - PNEUMONIA [None]
  - TRANSIENT ISCHAEMIC ATTACK [None]
